FAERS Safety Report 23298270 (Version 5)
Quarter: 2024Q1

REPORT INFORMATION
  Report Type: Spontaneous
  Country: ES (occurrence: ES)
  Receive Date: 20231214
  Receipt Date: 20240124
  Transmission Date: 20240410
  Serious: Yes (Death, Life-Threatening, Hospitalization, Other)
  Sender: FDA-Public Use
  Company Number: ES-009507513-2312ESP005043

PATIENT
  Age: 68 Year
  Sex: Male

DRUGS (3)
  1. PEMBROLIZUMAB [Suspect]
     Active Substance: PEMBROLIZUMAB
     Indication: Clear cell renal cell carcinoma
     Dosage: 400 MILLIGRAM, EVERY 6 WEEKS
     Route: 042
     Dates: start: 20231010, end: 20231010
  2. FEBUXOSTAT [Concomitant]
     Active Substance: FEBUXOSTAT
     Indication: Hyperuricaemia
     Dosage: DOSE: 80MG, TOTAL DAILY DOSE: 40MG
     Route: 048
     Dates: end: 20231121
  3. CYANOCOBALAMIN\FOLIC ACID [Concomitant]
     Active Substance: CYANOCOBALAMIN\FOLIC ACID
     Indication: Nephrogenic anaemia
     Dosage: DOSE: 400MG/2MCG, TOTAL DAILY DOSE: 400MG/2MCG
     Route: 048
     Dates: end: 20231121

REACTIONS (19)
  - Immune-mediated adrenal insufficiency [Fatal]
  - Cardio-respiratory arrest [Fatal]
  - Immune-mediated lung disease [Fatal]
  - Immune-mediated myositis [Not Recovered/Not Resolved]
  - Immune-mediated myocarditis [Not Recovered/Not Resolved]
  - Shock [Unknown]
  - Septic shock [Unknown]
  - Cerebral atrophy [Unknown]
  - Hypoxia [Unknown]
  - Pulmonary oedema [Unknown]
  - Myocardial oedema [Unknown]
  - Pleural effusion [Unknown]
  - Vision blurred [Unknown]
  - Blood glucose abnormal [Unknown]
  - Blood urea abnormal [Unknown]
  - Blood creatinine abnormal [Unknown]
  - Atelectasis [Unknown]
  - Back pain [Unknown]
  - Rash [Unknown]

NARRATIVE: CASE EVENT DATE: 20231027
